FAERS Safety Report 8538812 (Version 6)
Quarter: 2013Q3

REPORT INFORMATION
  Report Type: Report from Study
  Country: JP (occurrence: JP)
  Receive Date: 20120501
  Receipt Date: 20130724
  Transmission Date: 20140515
  Serious: Yes (Other)
  Sender: FDA-Public Use
  Company Number: JP-VERTEX PHARMACEUTICALS INC.-AE-2012-006005

PATIENT
  Age: 68 Year
  Sex: Male

DRUGS (9)
  1. VX-950 (TELAPREVIR) [Suspect]
     Indication: HEPATITIS C
     Dosage: 1500 MG, QD
     Route: 048
     Dates: start: 20120410, end: 20120424
  2. PEGINTRON [Suspect]
     Indication: CHRONIC HEPATITIS C
     Dosage: 1.5 ?G/KG, QW
     Route: 058
     Dates: start: 20120410, end: 20120416
  3. PEGINTRON [Suspect]
     Dosage: 0.75 ?G/KG, QW
     Route: 058
     Dates: start: 20120417, end: 20120423
  4. REBETOL [Suspect]
     Indication: CHRONIC HEPATITIS C
     Dosage: 800 MG, QD
     Route: 048
     Dates: start: 20120410, end: 20120424
  5. ZYLORIC [Suspect]
     Indication: HYPERURICAEMIA
     Dosage: 200 MG, QD
     Route: 048
     Dates: start: 20120417, end: 20120424
  6. URSO [Concomitant]
     Dosage: 900 MG, QD
     Route: 048
  7. LIVACT [Concomitant]
     Dosage: 12.45 G, QD
     Route: 048
  8. MYSLEE [Concomitant]
     Dosage: 10 MG, PRN
     Route: 048
  9. PROMAC [Concomitant]
     Dosage: 150 MG, PRN
     Route: 048

REACTIONS (1)
  - Liver disorder [Recovered/Resolved]
